FAERS Safety Report 5006470-2 (Version None)
Quarter: 2006Q2

REPORT INFORMATION
  Report Type: 
  Country: None (occurrence: None)
  Receive Date: 20060516
  Receipt Date: 20060426
  Transmission Date: 20061013
  Serious: Yes (Hospitalization, Disabling)
  Sender: FDA-Public Use
  Company Number: KR200604000202

PATIENT
  Age: 33 Year
  Sex: Male
  Weight: 48 kg

DRUGS (6)
  1. HUMALOG [Suspect]
     Indication: DIABETES MELLITUS
     Dosage: 22 U, DAILY (1/D), UNK
     Route: 065
     Dates: start: 20010101, end: 20051101
  2. HUMULIN N [Suspect]
     Indication: DIABETES MELLITUS
     Dosage: 15 U, 2/D, UNK
     Route: 065
  3. NOVOLET 30 R CHU (INSULIN HUMAN INJECTION, ISOPHANE) [Concomitant]
  4. LOSARTAN POTASSIUM [Concomitant]
  5. GABAPENTIN [Concomitant]
  6. AMITRIPTYLINE HCL [Concomitant]

REACTIONS (11)
  - BLINDNESS [None]
  - CATARACT [None]
  - DIABETES MELLITUS INADEQUATE CONTROL [None]
  - EYE DISCHARGE [None]
  - EYE PAIN [None]
  - GLAUCOMA [None]
  - INTRAOCULAR PRESSURE INCREASED [None]
  - LOSS OF EMPLOYMENT [None]
  - PYREXIA [None]
  - TREATMENT NONCOMPLIANCE [None]
  - VISUAL DISTURBANCE [None]
